FAERS Safety Report 18463022 (Version 2)
Quarter: 2020Q4

REPORT INFORMATION
  Report Type: Spontaneous
  Country: GB (occurrence: GB)
  Receive Date: 20201104
  Receipt Date: 20201120
  Transmission Date: 20210114
  Serious: Yes (Other)
  Sender: FDA-Public Use
  Company Number: GB-GALDERMA-GB19069939

PATIENT
  Age: 70 Year
  Sex: Male

DRUGS (3)
  1. DUODOPA [Concomitant]
     Active Substance: CARBIDOPA\LEVODOPA
     Indication: PARKINSON^S DISEASE
     Dosage: 100ML CASSETTE
     Route: 050
  2. DUODOPA [Concomitant]
     Active Substance: CARBIDOPA\LEVODOPA
     Dosage: 100 ML CASSETTE IN A DAY
     Route: 065
  3. METRONIDAZOLE. [Suspect]
     Active Substance: METRONIDAZOLE
     Indication: STOMA SITE INFECTION
     Route: 065

REACTIONS (14)
  - Stoma site haemorrhage [Unknown]
  - Parkinson^s disease [Unknown]
  - Stoma site erythema [Unknown]
  - Fungal infection [Unknown]
  - Paraesthesia [Unknown]
  - Stoma site inflammation [Unknown]
  - Gait disturbance [Unknown]
  - Intentional product misuse [Recovered/Resolved]
  - Mobility decreased [Unknown]
  - Stoma site discharge [Unknown]
  - Pain [Unknown]
  - Stoma site infection [Recovering/Resolving]
  - Stoma site discomfort [Unknown]
  - Stoma site pain [Unknown]

NARRATIVE: CASE EVENT DATE: 201711
